FAERS Safety Report 23187716 (Version 1)
Quarter: 2023Q4

REPORT INFORMATION
  Report Type: Other
  Country: US (occurrence: US)
  Receive Date: 20231115
  Receipt Date: 20231115
  Transmission Date: 20240110
  Serious: No
  Sender: FDA-Public Use
  Company Number: US-TRAVERE-2023TVT00594

PATIENT
  Age: 26 Year
  Sex: Male
  Weight: 74.84 kg

DRUGS (5)
  1. FILSPARI [Suspect]
     Active Substance: SPARSENTAN
     Indication: IgA nephropathy
     Route: 048
     Dates: start: 202307
  2. TYLENOL [Concomitant]
     Active Substance: ACETAMINOPHEN
  3. NAPROXEN [Concomitant]
     Active Substance: NAPROXEN
  4. NAPROSYN [Concomitant]
     Active Substance: NAPROXEN
  5. HUMIRA [Concomitant]
     Active Substance: ADALIMUMAB

REACTIONS (1)
  - Arthralgia [Unknown]
